FAERS Safety Report 13185602 (Version 2)
Quarter: 2017Q1

REPORT INFORMATION
  Report Type: Spontaneous
  Country: JP (occurrence: JP)
  Receive Date: 20170203
  Receipt Date: 20170228
  Transmission Date: 20170428
  Serious: Yes (Hospitalization)
  Sender: FDA-Public Use
  Company Number: JP-PFIZER INC-2017046386

PATIENT
  Age: 62 Year
  Sex: Male

DRUGS (8)
  1. ELPLAT [Suspect]
     Active Substance: OXALIPLATIN
     Indication: RECTAL CANCER
     Dosage: UNK UNK, 1X/DAY
     Route: 041
     Dates: start: 201403, end: 201502
  2. OLDAMIN [Concomitant]
     Active Substance: ETHANOLAMINE OLEATE
     Dosage: UNK
     Dates: start: 201605, end: 201605
  3. VECTIBIX [Concomitant]
     Active Substance: PANITUMUMAB
     Dosage: UNK
     Dates: start: 201507, end: 201602
  4. TRIFLURIDINE. [Concomitant]
     Active Substance: TRIFLURIDINE
     Dosage: UNK
     Dates: start: 201603
  5. AVASTIN [Concomitant]
     Active Substance: BEVACIZUMAB
     Dosage: UNK
     Dates: start: 201403, end: 201506
  6. XELODA [Concomitant]
     Active Substance: CAPECITABINE
     Dosage: UNK
     Dates: start: 201403, end: 201502
  7. CAMPTO [Suspect]
     Active Substance: IRINOTECAN
     Indication: RECTAL CANCER
     Dosage: UNK, 1X/DAY
     Route: 041
     Dates: start: 201504, end: 201506
  8. IOPAMIRON [Concomitant]
     Active Substance: IOPAMIDOL
     Dosage: UNK
     Dates: start: 201605, end: 201605

REACTIONS (1)
  - Stomal varices [Recovered/Resolved]

NARRATIVE: CASE EVENT DATE: 201605
